FAERS Safety Report 6094839-7 (Version None)
Quarter: 2009Q1

REPORT INFORMATION
  Report Type: 
  Country: None (occurrence: None)
  Receive Date: 20090225
  Receipt Date: 20090213
  Transmission Date: 20090719
  Serious: No
  Sender: FDA-Public Use
  Company Number: US025482

PATIENT
  Age: 49 Year
  Sex: Female
  Weight: 44.9061 kg

DRUGS (9)
  1. FENTORA [Suspect]
     Indication: OCULAR NEOPLASM
     Dosage: 200 UG BUCCAL
     Route: 002
     Dates: start: 20060101
  2. BUTALBITAL/ASA/CODEINE [Concomitant]
  3. ORGANIDIN NR [Concomitant]
  4. BECONASE AQ [Concomitant]
  5. SYNTHROID [Concomitant]
  6. VIGAMOX [Concomitant]
  7. GENTEAL [Concomitant]
  8. NASONEX [Concomitant]
  9. LOMOTIL [Concomitant]

REACTIONS (3)
  - DRUG PRESCRIBING ERROR [None]
  - ORAL DISCOMFORT [None]
  - ORAL DISORDER [None]
